FAERS Safety Report 8890504 (Version 6)
Quarter: 2013Q2

REPORT INFORMATION
  Report Type: Spontaneous
  Country: US (occurrence: US)
  Receive Date: 20121107
  Receipt Date: 20130515
  Transmission Date: 20140414
  Serious: Yes (Hospitalization, Other)
  Sender: FDA-Public Use
  Company Number: US-009507513-1211USA001657

PATIENT
  Sex: Female
  Weight: 74.83 kg

DRUGS (7)
  1. FOSAMAX [Suspect]
     Indication: OSTEOPENIA
     Dosage: 5 MG, QD
     Route: 048
     Dates: start: 1997
  2. FOSAMAX [Suspect]
     Indication: OSTEOPOROSIS
     Dosage: 70 MG, QW
     Route: 048
     Dates: end: 201107
  3. ALENDRONATE SODIUM [Suspect]
  4. OGEN [Concomitant]
     Indication: HOT FLUSH
     Dosage: 0.75 MG, UNK
     Dates: start: 200701, end: 201201
  5. VAGIFEM [Concomitant]
     Indication: MENOPAUSE
     Dosage: 25 MICROGRAM, UNK
     Dates: start: 200701, end: 200709
  6. CALCIUM (UNSPECIFIED) [Concomitant]
  7. VITAMIN D (UNSPECIFIED) [Concomitant]

REACTIONS (52)
  - Femur fracture [Recovered/Resolved]
  - Open reduction of fracture [Unknown]
  - Open reduction of fracture [Unknown]
  - Knee arthroplasty [Recovered/Resolved]
  - Parathyroidectomy [Unknown]
  - Hypotension [Unknown]
  - Urinary tract infection [Unknown]
  - Urinary tract infection pseudomonal [Unknown]
  - Urinary tract infection enterococcal [Unknown]
  - Arthroscopy [Unknown]
  - Open reduction of fracture [Unknown]
  - Upper limb fracture [Recovering/Resolving]
  - Tendon operation [Unknown]
  - Bladder operation [Unknown]
  - Femur fracture [Recovered/Resolved]
  - Asthma [Unknown]
  - Sinusitis [Unknown]
  - Osteoarthritis [Unknown]
  - Impaired healing [Recovered/Resolved]
  - Fracture nonunion [Recovered/Resolved]
  - Parathyroid tumour benign [Unknown]
  - Low turnover osteopathy [Unknown]
  - Adverse event [Unknown]
  - Hysterectomy [Unknown]
  - Cough [Not Recovered/Not Resolved]
  - Bronchitis [Unknown]
  - Memory impairment [Unknown]
  - Arrhythmia [Unknown]
  - Hyperparathyroidism [Unknown]
  - Arthritis [Unknown]
  - Diverticulum [Unknown]
  - Fall [Unknown]
  - Contusion [Unknown]
  - Sluggishness [Unknown]
  - Cough [Unknown]
  - Pharyngitis [Unknown]
  - Blood pressure inadequately controlled [Unknown]
  - Hypertension [Unknown]
  - Candida infection [Unknown]
  - Arthritis [Unknown]
  - Lumbar spinal stenosis [Unknown]
  - Lumbar radiculopathy [Unknown]
  - Tendon injury [Unknown]
  - Arthritis [Unknown]
  - Bursitis [Unknown]
  - Arthropathy [Unknown]
  - Arthralgia [Unknown]
  - Headache [Unknown]
  - Drug ineffective [Unknown]
  - Nausea [Unknown]
  - Vomiting [Unknown]
  - Gastrooesophageal reflux disease [Unknown]
